FAERS Safety Report 17398223 (Version 1)
Quarter: 2020Q1

REPORT INFORMATION
  Report Type: Spontaneous
  Country: US (occurrence: US)
  Receive Date: 20200210
  Receipt Date: 20200210
  Transmission Date: 20200409
  Serious: No
  Sender: FDA-Public Use
  Company Number: US-ENDO PHARMACEUTICALS INC-2019-105096

PATIENT
  Age: 69 Year

DRUGS (1)
  1. DILTIAZEM HYDROCHLORIDE. [Suspect]
     Active Substance: DILTIAZEM HYDROCHLORIDE
     Indication: ATRIAL FIBRILLATION
     Dosage: UNK, UNKNOWN
     Route: 065

REACTIONS (5)
  - Blood pressure increased [Unknown]
  - Chills [Unknown]
  - Chest pain [Unknown]
  - Drug ineffective [Unknown]
  - Dyspnoea [Unknown]
